FAERS Safety Report 20718777 (Version 1)
Quarter: 2022Q2

REPORT INFORMATION
  Report Type: Other
  Country: JP (occurrence: JP)
  Receive Date: 20220418
  Receipt Date: 20220418
  Transmission Date: 20220721
  Serious: Yes (Other)
  Sender: FDA-Public Use
  Company Number: JP-CHUGAI-2022006763

PATIENT
  Age: 79 Year
  Sex: Female
  Weight: 40 kg

DRUGS (5)
  1. ATEZOLIZUMAB [Suspect]
     Active Substance: ATEZOLIZUMAB
     Indication: Non-small cell lung cancer
     Dosage: 1200 MILLIGRAM
     Route: 041
     Dates: start: 20210629
  2. CARBOPLATIN [Concomitant]
     Active Substance: CARBOPLATIN
     Indication: Non-small cell lung cancer
     Dosage: 360 MILLIGRAM
     Route: 041
     Dates: start: 20210629
  3. CARBOPLATIN [Concomitant]
     Active Substance: CARBOPLATIN
     Dosage: 360 MILLIGRAM
     Route: 041
     Dates: start: 20210721
  4. PACLITAXEL [Concomitant]
     Active Substance: PACLITAXEL
     Indication: Non-small cell lung cancer
     Dosage: 120 MILLIGRAM, ONCE/3WEEKS
     Route: 041
     Dates: start: 20210629, end: 20210721
  5. PACLITAXEL [Concomitant]
     Active Substance: PACLITAXEL
     Dosage: 120 MILLIGRAM
     Route: 041
     Dates: start: 20210811

REACTIONS (4)
  - Hypoxia [Unknown]
  - Acute kidney injury [Unknown]
  - Cystitis [Unknown]
  - Anaemia [Unknown]
